FAERS Safety Report 5880386-1 (Version None)
Quarter: 2008Q3

REPORT INFORMATION
  Report Type: 
  Country: None (occurrence: None)
  Receive Date: 20080912
  Receipt Date: 20080801
  Transmission Date: 20090109
  Serious: No
  Sender: FDA-Public Use
  Company Number: PR-ABBOTT-08P-131-0463302-00

PATIENT
  Sex: Male
  Weight: 96.248 kg

DRUGS (1)
  1. HUMIRA [Suspect]
     Indication: PSORIASIS
     Route: 058
     Dates: start: 20080201

REACTIONS (3)
  - DEPRESSION [None]
  - EPHELIDES [None]
  - NODULE [None]
